FAERS Safety Report 5499838-1 (Version None)
Quarter: 2007Q4

REPORT INFORMATION
  Report Type: 
  Country: None (occurrence: None)
  Receive Date: 20071026
  Receipt Date: 20071016
  Transmission Date: 20080405
  Serious: Yes (Hospitalization)
  Sender: FDA-Public Use
  Company Number: GB-PFIZER INC-2007078321

PATIENT
  Age: 51 Year
  Sex: Female

DRUGS (4)
  1. AZITHROMYCIN [Suspect]
     Indication: PSEUDOMONAS INFECTION
  2. COLOMYCIN [Interacting]
     Indication: PSEUDOMONAS INFECTION
     Route: 042
  3. TOBRAMYCIN [Interacting]
     Indication: PSEUDOMONAS INFECTION
     Route: 042
  4. TOBI [Concomitant]
     Route: 045

REACTIONS (6)
  - BLOOD CREATININE INCREASED [None]
  - CREATININE RENAL CLEARANCE DECREASED [None]
  - DRUG INTERACTION [None]
  - DRUG LEVEL INCREASED [None]
  - EOSINOPHILIA [None]
  - RENAL FAILURE ACUTE [None]
